FAERS Safety Report 6210039-1 (Version None)
Quarter: 2009Q2

REPORT INFORMATION
  Report Type: 
  Country: None (occurrence: None)
  Receive Date: 20090601
  Receipt Date: 20090527
  Transmission Date: 20091009
  Serious: Yes (Life-Threatening)
  Sender: FDA-Public Use
  Company Number: PHHY2009BR20641

PATIENT
  Sex: Female

DRUGS (5)
  1. DIOVAN HCT [Suspect]
     Indication: HYPERTENSION
     Dosage: 160/12.5 MG
     Route: 048
  2. DIOVAN HCT [Suspect]
     Dosage: 320/12.5 MG
     Route: 048
  3. SOMALGIN [Concomitant]
     Indication: PAIN
     Dosage: ONE TABLET DAILY
     Route: 048
  4. VITAMINS WITH MINERALS [Concomitant]
     Dosage: ONE TABLET DAILY
     Route: 048
     Dates: start: 20090517
  5. DIOVAN [Suspect]

REACTIONS (14)
  - ABDOMINAL PAIN [None]
  - ANOREXIA [None]
  - ARTHRALGIA [None]
  - BLOOD PRESSURE INCREASED [None]
  - FEAR OF DEATH [None]
  - GASTRITIS [None]
  - INSOMNIA [None]
  - JOINT SWELLING [None]
  - NAUSEA [None]
  - PAROSMIA [None]
  - PRODUCTIVE COUGH [None]
  - SKIN DISORDER [None]
  - VOMITING [None]
  - WEIGHT DECREASED [None]
